FAERS Safety Report 6037473-7 (Version None)
Quarter: 2009Q1

REPORT INFORMATION
  Report Type: 
  Country: None (occurrence: None)
  Receive Date: 20090114
  Receipt Date: 20081202
  Transmission Date: 20090719
  Serious: Yes (Other)
  Sender: FDA-Public Use
  Company Number: US-PFIZER INC-2008077802

PATIENT
  Sex: Female
  Weight: 72.6 kg

DRUGS (7)
  1. LYRICA [Suspect]
     Indication: FIBROMYALGIA
     Dosage: 50 MG, 3X/DAY
     Route: 048
     Dates: start: 20080701
  2. LYRICA [Suspect]
     Indication: NEURALGIA
  3. LYRICA [Suspect]
     Indication: MYALGIA
  4. LEXAPRO [Concomitant]
     Dosage: 10 MG, UNK
  5. SYNTHROID [Concomitant]
     Dosage: 125 UNK, UNK
  6. PROTONIX [Concomitant]
     Dosage: 40 MG, UNK
  7. PLAVIX [Concomitant]
     Dosage: 75 MG, UNK

REACTIONS (1)
  - BLEPHARITIS [None]
